FAERS Safety Report 18379973 (Version 4)
Quarter: 2020Q4

REPORT INFORMATION
  Report Type: Report from Study
  Country: None (occurrence: IL)
  Receive Date: 20201014
  Receipt Date: 20201214
  Transmission Date: 20210114
  Serious: Yes (Other)
  Sender: FDA-Public Use
  Company Number: IL-ABBVIE-20K-082-3604502-00

PATIENT
  Age: 64 Year
  Sex: Female

DRUGS (2)
  1. DUODOPA [Suspect]
     Active Substance: CARBIDOPA\LEVODOPA
     Dosage: MD: 14.0 ML, CD: 3.5 ML, ED: 1.5 ML
     Route: 050
  2. DUODOPA [Suspect]
     Active Substance: CARBIDOPA\LEVODOPA
     Indication: PARKINSON^S DISEASE
     Dosage: CMD 14 ML, CURRENT CD  3.5 ML/HOUR, CURRENT ED1.5 ML
     Route: 050
     Dates: start: 20180310

REACTIONS (8)
  - Fall [Unknown]
  - Stoma site discharge [Unknown]
  - Stoma site discharge [Recovered/Resolved]
  - Stoma site erythema [Unknown]
  - On and off phenomenon [Unknown]
  - Rib fracture [Recovering/Resolving]
  - Pain [Recovered/Resolved]
  - Bowel movement irregularity [Unknown]

NARRATIVE: CASE EVENT DATE: 202009
